FAERS Safety Report 7808666-0 (Version None)
Quarter: 2011Q4

REPORT INFORMATION
  Report Type: 
  Country: None (occurrence: None)
  Receive Date: 20111012
  Receipt Date: 20111007
  Transmission Date: 20120403
  Serious: Yes (Other)
  Sender: FDA-Public Use
  Company Number: US-AMGEN-USASP2011039853

PATIENT
  Age: 64 Year
  Sex: Female

DRUGS (1)
  1. ENBREL [Suspect]
     Indication: RHEUMATOID ARTHRITIS
     Dosage: 50 MG, QWK
     Dates: start: 20090901

REACTIONS (9)
  - HALLUCINATION, AUDITORY [None]
  - FALL [None]
  - DIZZINESS [None]
  - INJECTION SITE HAEMATOMA [None]
  - HALLUCINATION, VISUAL [None]
  - BALANCE DISORDER [None]
  - INJECTION SITE PAIN [None]
  - DEPRESSION [None]
  - PARANOIA [None]
